FAERS Safety Report 10900842 (Version 1)
Quarter: 2015Q1

REPORT INFORMATION
  Report Type: Spontaneous
  Country: US (occurrence: US)
  Receive Date: 20150310
  Receipt Date: 20150310
  Transmission Date: 20150721
  Serious: No
  Sender: FDA-Public Use
  Company Number: US-PFIZER INC-2015085029

PATIENT
  Age: 60 Year
  Sex: Male

DRUGS (5)
  1. CRESTOR [Suspect]
     Active Substance: ROSUVASTATIN CALCIUM
     Dosage: UNK
  2. LIPITOR [Suspect]
     Active Substance: ATORVASTATIN CALCIUM
     Dosage: UNK
  3. EFFEXOR [Suspect]
     Active Substance: VENLAFAXINE HYDROCHLORIDE
     Dosage: UNK
  4. LOPID [Suspect]
     Active Substance: GEMFIBROZIL
     Dosage: UNK
  5. TRICOR [Suspect]
     Active Substance: FENOFIBRATE
     Dosage: UNK

REACTIONS (1)
  - Drug hypersensitivity [Unknown]
